FAERS Safety Report 21159547 (Version 2)
Quarter: 2022Q3

REPORT INFORMATION
  Report Type: Spontaneous
  Country: US (occurrence: US)
  Receive Date: 20220802
  Receipt Date: 20220920
  Transmission Date: 20221027
  Serious: No
  Sender: FDA-Public Use
  Company Number: US-PFIZER INC-202200986757

PATIENT
  Age: 16 Year
  Sex: Male

DRUGS (1)
  1. GENOTROPIN [Suspect]
     Active Substance: SOMATROPIN
     Indication: Growth hormone deficiency
     Dosage: INJECT AN AVERAGE OF 0.9 MG SQ DAILY, BY ALTERNATING 1MG ON ODD DAYS AND 0.8MG ON EVEN DAYS
     Route: 058

REACTIONS (2)
  - Device mechanical issue [Unknown]
  - Poor quality device used [Unknown]
